FAERS Safety Report 6816909-5 (Version None)
Quarter: 2010Q2

REPORT INFORMATION
  Report Type: 
  Country: None (occurrence: None)
  Receive Date: 20100630
  Receipt Date: 20100618
  Transmission Date: 20101027
  Serious: Yes (Death, Other)
  Sender: FDA-Public Use
  Company Number: 010580

PATIENT
  Sex: Male
  Weight: 52.3 kg

DRUGS (15)
  1. CERTOLIZUMAB PEGOL (CERTOLIZUMAB PEGOL) [Suspect]
     Indication: CROHN'S DISEASE
     Dosage: 400 MG 1X/MONTH SUBCUTANEOUS
     Route: 058
     Dates: start: 20060501, end: 20060601
  2. REMICADE [Suspect]
     Indication: CROHN'S DISEASE
     Dosage: INTRAVENOUS (NOT OTHERWISE SPECIFIED)
     Route: 042
     Dates: start: 20041101, end: 20050101
  3. HUMIRA [Suspect]
     Indication: CROHN'S DISEASE
     Dosage: SUBCUTANEOUS
     Route: 058
     Dates: start: 20080101, end: 20080501
  4. AZATHIOPRINE [Suspect]
     Indication: CROHN'S DISEASE
     Dosage: 50-150 MG DAILY ORAL
     Route: 048
     Dates: start: 20000101, end: 20100408
  5. PANTOPRAZOLE [Concomitant]
  6. TORASEMIDE [Concomitant]
  7. MOVICOL /01749801/ [Concomitant]
  8. MCP /00041901/ [Concomitant]
  9. ESPUMISAN /00159501/ [Concomitant]
  10. AMITRIPTYLINE [Concomitant]
  11. FENTANYL CITRATE [Concomitant]
  12. ENOXAPARIN [Concomitant]
  13. MORPHINE [Concomitant]
  14. PREDNISOLONE [Concomitant]
  15. SALOFALK /00000301/ [Concomitant]

REACTIONS (40)
  - ANXIETY [None]
  - ASCITES [None]
  - ASPARTATE AMINOTRANSFERASE INCREASED [None]
  - ASTHENIA [None]
  - BLOOD BILIRUBIN INCREASED [None]
  - BLOOD CALCIUM DECREASED [None]
  - BLOOD CREATININE INCREASED [None]
  - BLOOD UREA INCREASED [None]
  - BONE METABOLISM DISORDER [None]
  - CHOLELITHIASIS [None]
  - CONDITION AGGRAVATED [None]
  - CROHN'S DISEASE [None]
  - DECREASED APPETITE [None]
  - DEPRESSION [None]
  - DRUG INEFFECTIVE [None]
  - DYSPNOEA [None]
  - ESCHERICHIA TEST POSITIVE [None]
  - FATIGUE [None]
  - FISTULA [None]
  - GALLBLADDER DISORDER [None]
  - GASTROINTESTINAL CARCINOMA [None]
  - GASTROINTESTINAL STOMA COMPLICATION [None]
  - GENERALISED OEDEMA [None]
  - HAEMATOCRIT DECREASED [None]
  - HAEMOGLOBIN DECREASED [None]
  - HAEMORRHAGE [None]
  - HEPATOMEGALY [None]
  - KIDNEY ENLARGEMENT [None]
  - MALIGNANT NEOPLASM PROGRESSION [None]
  - METASTASES TO LIVER [None]
  - MULTI-ORGAN FAILURE [None]
  - NAUSEA [None]
  - RENAL DISORDER [None]
  - RENAL FAILURE ACUTE [None]
  - SLEEP DISORDER [None]
  - SPLENOMEGALY [None]
  - SQUAMOUS CELL CARCINOMA [None]
  - URINARY TRACT DISORDER [None]
  - VOMITING [None]
  - WHITE BLOOD CELL COUNT INCREASED [None]
